FAERS Safety Report 7336480-1 (Version None)
Quarter: 2011Q1

REPORT INFORMATION
  Report Type: 
  Country: None (occurrence: None)
  Receive Date: 20110307
  Receipt Date: 20110224
  Transmission Date: 20110831
  Serious: Yes (Other)
  Sender: FDA-Public Use
  Company Number: BR-GENENTECH-295128

PATIENT
  Sex: Female
  Weight: 59 kg

DRUGS (23)
  1. AMARYL [Concomitant]
     Indication: PRODUCT USED FOR UNKNOWN INDICATION
     Dosage: 1 MG, UNK
  2. RITUXIMAB [Suspect]
     Indication: RHEUMATOID ARTHRITIS
     Dosage: 1000 MG, Q15D
     Route: 042
     Dates: start: 20091025, end: 20091109
  3. ARAVA [Concomitant]
     Indication: RHEUMATOID ARTHRITIS
     Dosage: 20 MG, UNK
  4. ATACAND [Concomitant]
     Indication: HYPERTENSION
     Dosage: 16 MG, UNK
  5. MINOCYCLINE HCL [Concomitant]
     Indication: RHEUMATOID ARTHRITIS
  6. EZETIMIBE [Concomitant]
     Indication: PRODUCT USED FOR UNKNOWN INDICATION
  7. CALCORT [Concomitant]
     Indication: PRODUCT USED FOR UNKNOWN INDICATION
  8. GALVUS [Concomitant]
     Indication: DIABETES MELLITUS
     Dosage: 900 MG, UNK
  9. CELEBREX [Concomitant]
     Indication: PRODUCT USED FOR UNKNOWN INDICATION
     Dosage: 200 MG, UNK
  10. AAS [Concomitant]
     Indication: PRODUCT USED FOR UNKNOWN INDICATION
     Dosage: UNK
  11. PLAVIX [Concomitant]
     Indication: PRODUCT USED FOR UNKNOWN INDICATION
     Dosage: 7.5 MG, UNK
  12. DEFLANIL [Concomitant]
     Indication: RHEUMATOID ARTHRITIS
     Dosage: 7.5 MG, UNK
  13. RITUXIMAB [Suspect]
     Dosage: 1000 MG, Q15D
     Route: 042
     Dates: start: 20100917, end: 20101001
  14. CRESTOR [Concomitant]
     Indication: BLOOD CHOLESTEROL ABNORMAL
     Dosage: 10 MG, UNK
  15. ASPIRIN [Concomitant]
     Indication: PRODUCT USED FOR UNKNOWN INDICATION
  16. CALCIUM [Concomitant]
     Indication: PRODUCT USED FOR UNKNOWN INDICATION
  17. CORTISONE [Concomitant]
     Indication: PRODUCT USED FOR UNKNOWN INDICATION
  18. FLUOXETINE [Concomitant]
     Indication: PRODUCT USED FOR UNKNOWN INDICATION
     Dosage: 20 MG, UNK
  19. GALVUS [Concomitant]
     Dosage: 550 MG, UNK
  20. NATRILIX [Concomitant]
     Indication: HYPERTENSION
     Dosage: UNK
  21. NEXIUM [Concomitant]
     Indication: PROPHYLAXIS
     Dosage: 20 MG, UNK
  22. BONIVA [Concomitant]
     Indication: PRODUCT USED FOR UNKNOWN INDICATION
  23. RAMIPRIL [Concomitant]
     Indication: HYPERTENSION

REACTIONS (15)
  - RHEUMATOID ARTHRITIS [None]
  - INFLUENZA [None]
  - CYST [None]
  - JOINT SWELLING [None]
  - BLOOD GLUCOSE INCREASED [None]
  - SOMNOLENCE [None]
  - RED BLOOD CELL SEDIMENTATION RATE INCREASED [None]
  - SWELLING [None]
  - ASTHENIA [None]
  - ARTERIOSCLEROSIS CORONARY ARTERY [None]
  - PAIN IN EXTREMITY [None]
  - HYPERSENSITIVITY [None]
  - GAIT DISTURBANCE [None]
  - DRUG INEFFECTIVE [None]
  - THROAT IRRITATION [None]
